FAERS Safety Report 20852573 (Version 1)
Quarter: 2022Q2

REPORT INFORMATION
  Report Type: Spontaneous
  Country: CN (occurrence: CN)
  Receive Date: 20220520
  Receipt Date: 20220520
  Transmission Date: 20220721
  Serious: Yes (Other)
  Sender: FDA-Public Use
  Company Number: CN-MLMSERVICE-2022050935452891

PATIENT
  Age: 57 Year
  Sex: Male

DRUGS (3)
  1. CARBOPLATIN [Suspect]
     Active Substance: CARBOPLATIN
     Indication: Glioblastoma
     Dosage: CUMULATIVE DOSE: 1 CYCLICAL
  2. ETOPOSIDE [Suspect]
     Active Substance: ETOPOSIDE
     Indication: Glioblastoma
     Dosage: CUMULATIVE DOSE: 1 CYCLICAL
  3. METHOTREXATE [Suspect]
     Active Substance: METHOTREXATE
     Indication: Glioblastoma
     Dosage: CUMULATIVE DOSE: 1 CYCLICAL

REACTIONS (2)
  - Pneumonia [Unknown]
  - Lymphopenia [Unknown]
